FAERS Safety Report 6576021-X (Version None)
Quarter: 2010Q1

REPORT INFORMATION
  Report Type: 
  Country: None (occurrence: None)
  Receive Date: 20100209
  Receipt Date: 20100127
  Transmission Date: 20100710
  Serious: Yes (Hospitalization, Other)
  Sender: FDA-Public Use
  Company Number: PHHY2010FR04529

PATIENT
  Sex: Female

DRUGS (8)
  1. SANDOSTATIN [Suspect]
     Dosage: 100 MG, TID
     Dates: start: 20091006, end: 20091016
  2. ESOMEPRAZOLE [Suspect]
     Dosage: 40 MG DAILY
     Route: 042
     Dates: start: 20091006, end: 20091019
  3. ESOMEPRAZOLE [Suspect]
     Dosage: UNK
     Dates: start: 20091104
  4. LOVENOX [Suspect]
     Dosage: 0.4 ML DAILY
     Dates: start: 20091002, end: 20091016
  5. METHYLPREDNISOLONE [Concomitant]
     Dosage: 60 MG DAILY
     Dates: start: 20091006
  6. METHYLPREDNISOLONE [Concomitant]
     Dosage: 60 MG DAILY
  7. METHYLPREDNISOLONE [Concomitant]
     Dosage: 10 MG DAILY
  8. ARIXTRA [Concomitant]
     Dosage: 2.5 MG, UNK

REACTIONS (4)
  - APLASTIC ANAEMIA [None]
  - HAEMOGLOBIN DECREASED [None]
  - NEUTROPENIA [None]
  - THROMBOCYTOPENIA [None]
